FAERS Safety Report 18101185 (Version 1)
Quarter: 2020Q3

REPORT INFORMATION
  Report Type: Spontaneous
  Country: US (occurrence: US)
  Receive Date: 20200801
  Receipt Date: 20200801
  Transmission Date: 20201103
  Serious: No
  Sender: FDA-Public Use
  Company Number: US-BIOGEN-2018BI00529898

PATIENT
  Sex: Female

DRUGS (3)
  1. TECFIDERA [Suspect]
     Active Substance: DIMETHYL FUMARATE
     Route: 050
  2. TECFIDERA [Suspect]
     Active Substance: DIMETHYL FUMARATE
     Route: 065
     Dates: start: 20180202
  3. TECFIDERA [Suspect]
     Active Substance: DIMETHYL FUMARATE
     Indication: MULTIPLE SCLEROSIS
     Route: 050
     Dates: start: 201702

REACTIONS (9)
  - Memory impairment [Unknown]
  - Decreased interest [Unknown]
  - Feeling hot [Unknown]
  - Cognitive disorder [Unknown]
  - Erythema [Unknown]
  - Flushing [Unknown]
  - Depression [Unknown]
  - Pruritus [Unknown]
  - Balance disorder [Unknown]
